FAERS Safety Report 15825721 (Version 5)
Quarter: 2019Q2

REPORT INFORMATION
  Report Type: Spontaneous
  Country: US (occurrence: US)
  Receive Date: 20190115
  Receipt Date: 20190513
  Transmission Date: 20190711
  Serious: Yes (Hospitalization, Other)
  Sender: FDA-Public Use
  Company Number: US-PFIZER INC-2019018467

PATIENT
  Age: 63 Year
  Sex: Female
  Weight: 74 kg

DRUGS (1)
  1. IBRANCE [Suspect]
     Active Substance: PALBOCICLIB
     Indication: BREAST CANCER METASTATIC
     Dosage: 75 MG, CYCLIC (ONCE A DAY FOR 21DAYS THEN OFF 7 DAYS)
     Route: 048
     Dates: start: 201812

REACTIONS (17)
  - Loss of consciousness [Unknown]
  - Vomiting [Unknown]
  - Sleep deficit [Unknown]
  - Pain in extremity [Unknown]
  - Crying [Unknown]
  - Tooth loss [Unknown]
  - Pain [Unknown]
  - Hostility [Unknown]
  - Feeling abnormal [Unknown]
  - Chills [Unknown]
  - Cognitive disorder [Unknown]
  - Dysstasia [Unknown]
  - Blood urine present [Unknown]
  - Dry skin [Unknown]
  - Alopecia [Unknown]
  - Feeling cold [Unknown]
  - Joint stiffness [Unknown]

NARRATIVE: CASE EVENT DATE: 201812
